FAERS Safety Report 12784366 (Version 1)
Quarter: 2016Q3

REPORT INFORMATION
  Report Type: Spontaneous
  Country: CA (occurrence: CA)
  Receive Date: 20160927
  Receipt Date: 20160927
  Transmission Date: 20161109
  Serious: Yes (Other)
  Sender: FDA-Public Use
  Company Number: CA-BEH-2014043101

PATIENT
  Age: 47 Year
  Sex: Female
  Weight: 80 kg

DRUGS (5)
  1. PRIVIGEN [Suspect]
     Active Substance: HUMAN IMMUNOGLOBULIN G
     Dosage: 20GM;38 ML/HR (START) 300 ML/HR (END)
     Route: 042
     Dates: start: 20140324, end: 20140325
  2. PRIVIGEN [Suspect]
     Active Substance: HUMAN IMMUNOGLOBULIN G
     Dosage: 20 GM; 38 ML/HR (START) 300 ML/HR (END)
     Route: 042
     Dates: start: 20140324, end: 20140325
  3. PRIVIGEN [Suspect]
     Active Substance: HUMAN IMMUNOGLOBULIN G
     Dosage: 20GM; 38 ML/HR (START) 300 ML/HR (END)
     Route: 042
     Dates: start: 20140324, end: 20140325
  4. PRIVIGEN [Suspect]
     Active Substance: HUMAN IMMUNOGLOBULIN G
     Indication: IMMUNE THROMBOCYTOPENIC PURPURA
     Dosage: 5 GM; 38ML/HR (START) 300 ML/HR (END)
     Route: 042
     Dates: start: 20140324, end: 20140325
  5. PRIVIGEN [Suspect]
     Active Substance: HUMAN IMMUNOGLOBULIN G
     Dosage: 10GM; 38 ML/HR (START) 300 ML/HR (END)
     Route: 042
     Dates: start: 20140324, end: 20140325

REACTIONS (1)
  - Haemolysis [Unknown]

NARRATIVE: CASE EVENT DATE: 20140328
